FAERS Safety Report 10873443 (Version 2)
Quarter: 2016Q1

REPORT INFORMATION
  Report Type: Spontaneous
  Country: US (occurrence: US)
  Receive Date: 20150227
  Receipt Date: 20160110
  Transmission Date: 20160525
  Serious: No
  Sender: FDA-Public Use
  Company Number: US-AMGEN-USASP2015018243

PATIENT
  Age: 41 Year
  Sex: Female

DRUGS (10)
  1. ENBREL [Suspect]
     Active Substance: ETANERCEPT
     Indication: PSORIATIC ARTHROPATHY
  2. METHOTREXATE [Suspect]
     Active Substance: METHOTREXATE
     Indication: PSORIASIS
     Dosage: UNK
     Route: 065
     Dates: start: 2011, end: 2012
  3. STELARA [Suspect]
     Active Substance: USTEKINUMAB
     Indication: PRODUCT USED FOR UNKNOWN INDICATION
     Dosage: UNK
     Route: 065
     Dates: start: 2014, end: 201410
  4. CELEBREX [Concomitant]
     Active Substance: CELECOXIB
     Indication: PSORIATIC ARTHROPATHY
     Dosage: UNK
  5. ENBREL [Suspect]
     Active Substance: ETANERCEPT
     Indication: PSORIASIS
     Dosage: UNK
     Route: 065
     Dates: end: 2011
  6. HUMIRA [Suspect]
     Active Substance: ADALIMUMAB
     Indication: PSORIASIS
     Dosage: 40 MG, UNK (IN TWO WEEKS)
     Route: 058
     Dates: start: 2010, end: 2012
  7. HUMIRA [Suspect]
     Active Substance: ADALIMUMAB
     Indication: PSORIATIC ARTHROPATHY
     Dosage: 40 UNK, (IN TWO WEEKS)
     Route: 058
     Dates: start: 2012, end: 2012
  8. METHOTREXATE [Suspect]
     Active Substance: METHOTREXATE
     Indication: PSORIATIC ARTHROPATHY
  9. CIMZIA [Suspect]
     Active Substance: CERTOLIZUMAB PEGOL
     Indication: PRODUCT USED FOR UNKNOWN INDICATION
     Dosage: UNK
     Route: 065
     Dates: start: 20150119
  10. HUMIRA [Suspect]
     Active Substance: ADALIMUMAB
     Dosage: 40 UNK, (IN TWO WEEKS)
     Route: 058
     Dates: end: 201312

REACTIONS (9)
  - Alopecia [Recovered/Resolved]
  - Herpes simplex [Unknown]
  - Neck mass [Unknown]
  - Rash [Unknown]
  - Herpes zoster [Unknown]
  - Arthralgia [Unknown]
  - Vomiting [Recovered/Resolved]
  - Nodule [Unknown]
  - Influenza [Recovered/Resolved]

NARRATIVE: CASE EVENT DATE: 2011
